FAERS Safety Report 9236260 (Version 1)
Quarter: 2013Q2

REPORT INFORMATION
  Report Type: Spontaneous
  Country: FR (occurrence: FR)
  Receive Date: 20130417
  Receipt Date: 20130417
  Transmission Date: 20140414
  Serious: Yes (Hospitalization)
  Sender: FDA-Public Use
  Company Number: FR-PFIZER INC-2013114163

PATIENT
  Age: 54 Year
  Sex: Female

DRUGS (2)
  1. EFFEXOR LP [Suspect]
     Dosage: 1 DF, 1X/DAY
     Route: 048
     Dates: start: 20121224, end: 201302
  2. LAMICTAL [Suspect]
     Dosage: 1 DF, 1X/DAY
     Route: 048
     Dates: start: 201301, end: 201302

REACTIONS (9)
  - Pyrexia [Recovered/Resolved]
  - Neutropenia [Recovered/Resolved]
  - Lymphopenia [Recovered/Resolved]
  - Thrombocytopenia [Recovered/Resolved]
  - Hepatocellular injury [Recovered/Resolved]
  - Synovial cyst [Recovered/Resolved]
  - Aphthous stomatitis [Recovered/Resolved]
  - Rash [Recovered/Resolved]
  - Headache [Recovered/Resolved]
